FAERS Safety Report 10830063 (Version 1)
Quarter: 2015Q1

REPORT INFORMATION
  Report Type: Report from Study
  Country: US (occurrence: US)
  Receive Date: 20150219
  Receipt Date: 20150219
  Transmission Date: 20150721
  Serious: No
  Sender: FDA-Public Use
  Company Number: US-ABBVIE-14P-163-1188122-00

PATIENT
  Age: 31 Year
  Sex: Female

DRUGS (23)
  1. HUMIRA [Suspect]
     Active Substance: ADALIMUMAB
     Indication: CROHN^S DISEASE
     Dates: start: 20131209
  2. HUMIRA [Suspect]
     Active Substance: ADALIMUMAB
     Dates: start: 20131214
  3. HUMIRA [Suspect]
     Active Substance: ADALIMUMAB
     Dosage: PARTIAL DOSE
     Dates: start: 20131222
  4. FISH OIL [Concomitant]
     Active Substance: FISH OIL
     Indication: PRODUCT USED FOR UNKNOWN INDICATION
  5. VITAMIN D [Concomitant]
     Active Substance: CHOLECALCIFEROL
     Indication: PRODUCT USED FOR UNKNOWN INDICATION
  6. PROTEIN SHAKES [Concomitant]
     Indication: PRODUCT USED FOR UNKNOWN INDICATION
     Dosage: AS REQUIRED
  7. GREEN COFFEE BERRY [Concomitant]
     Indication: WEIGHT DECREASED
     Dosage: AS REQUIRED
  8. QUERCETIN [Concomitant]
     Active Substance: QUERCETIN
     Indication: HYPERSENSITIVITY
     Dosage: AS REQUIRED
  9. HUMIRA [Suspect]
     Active Substance: ADALIMUMAB
     Dates: start: 20140106
  10. TONALIN CLA [Concomitant]
     Indication: WEIGHT DECREASED
     Dosage: AS REQUIRED
  11. ENZYMES [Concomitant]
     Indication: PRODUCT USED FOR UNKNOWN INDICATION
  12. AMBIEN [Concomitant]
     Active Substance: ZOLPIDEM TARTRATE
     Indication: PRODUCT USED FOR UNKNOWN INDICATION
  13. HUMIRA [Suspect]
     Active Substance: ADALIMUMAB
     Dosage: PARTIAL INJECTION
     Dates: start: 20131227
  14. VALERIAN [Concomitant]
     Active Substance: VALERIAN
     Indication: INSOMNIA
     Dosage: AS REQUIRED
  15. TURMERIC [Concomitant]
     Active Substance: TURMERIC
     Indication: ANTIINFLAMMATORY THERAPY
     Dosage: AS REQUIRED
  16. RASPBERRY KETONES [Concomitant]
     Active Substance: RASPBERRY KETONE
     Indication: WEIGHT DECREASED
     Dosage: AS REQUIRED
  17. REMICADE [Concomitant]
     Active Substance: INFLIXIMAB
     Indication: PRODUCT USED FOR UNKNOWN INDICATION
  18. PROBIOTIC [Concomitant]
     Active Substance: PROBIOTICS NOS
     Indication: PRODUCT USED FOR UNKNOWN INDICATION
  19. GINGER. [Concomitant]
     Active Substance: GINGER
     Indication: ANTIINFLAMMATORY THERAPY
     Dosage: AS REQUIRED
  20. FLAX [Concomitant]
     Indication: PRODUCT USED FOR UNKNOWN INDICATION
     Dosage: AS REQUIRED
  21. VICODIN [Concomitant]
     Active Substance: ACETAMINOPHEN\HYDROCODONE BITARTRATE
     Indication: PRODUCT USED FOR UNKNOWN INDICATION
  22. MULTIVITAMIN [Concomitant]
     Active Substance: VITAMINS
     Indication: PRODUCT USED FOR UNKNOWN INDICATION
  23. VITAMIN B12 [Concomitant]
     Active Substance: CYANOCOBALAMIN
     Indication: PRODUCT USED FOR UNKNOWN INDICATION
     Dosage: AS REQUIRED

REACTIONS (7)
  - Anxiety [Recovered/Resolved]
  - Abasia [Recovered/Resolved]
  - Injection site pain [Recovered/Resolved]
  - Muscle spasms [Recovered/Resolved]
  - Palpitations [Recovered/Resolved]
  - Hot flush [Recovered/Resolved]
  - Respiration abnormal [Recovered/Resolved]

NARRATIVE: CASE EVENT DATE: 20131209
